FAERS Safety Report 22293752 (Version 1)
Quarter: 2023Q2

REPORT INFORMATION
  Report Type: Report from Study
  Country: PK (occurrence: PK)
  Receive Date: 20230508
  Receipt Date: 20230508
  Transmission Date: 20230722
  Serious: Yes (Other)
  Sender: FDA-Public Use
  Company Number: PK-002147023-NVSC2023PK102455

PATIENT
  Sex: Male
  Weight: 123 kg

DRUGS (1)
  1. ELTROMBOPAG OLAMINE [Suspect]
     Active Substance: ELTROMBOPAG OLAMINE
     Indication: Immune thrombocytopenia
     Dosage: 50 MG, QD
     Route: 048
     Dates: start: 20210520, end: 20210703

REACTIONS (2)
  - Immune thrombocytopenia [Recovering/Resolving]
  - Disease progression [Recovering/Resolving]
